FAERS Safety Report 16428263 (Version 1)
Quarter: 2019Q2

REPORT INFORMATION
  Report Type: Spontaneous
  Country: NL (occurrence: NL)
  Receive Date: 20190613
  Receipt Date: 20190613
  Transmission Date: 20190711
  Serious: Yes (Hospitalization)
  Sender: FDA-Public Use
  Company Number: NL-BAUSCH-BL-2019-016835

PATIENT
  Sex: Female

DRUGS (3)
  1. OMEPRAZOL GASTRO-RESISTANT CAPSULE, 20 MG (MILLIGRAM) [Suspect]
     Active Substance: OMEPRAZOLE
     Indication: PROPHYLAXIS AGAINST GASTROINTESTINAL ULCER
     Route: 065
     Dates: start: 201808, end: 201905
  2. PREDNISOLON (PREDNISOLONE SODIUM PHOSPHATE) [Suspect]
     Active Substance: PREDNISOLONE SODIUM PHOSPHATE
     Indication: ARTHRITIS
     Route: 065
     Dates: start: 201808
  3. PREDNISOLON (PREDNISOLONE SODIUM PHOSPHATE) [Suspect]
     Active Substance: PREDNISOLONE SODIUM PHOSPHATE
     Dosage: DOSE REDUCED
     Route: 065

REACTIONS (2)
  - Fatigue [Recovered/Resolved]
  - Atrial fibrillation [Unknown]
